FAERS Safety Report 17430997 (Version 1)
Quarter: 2020Q1

REPORT INFORMATION
  Report Type: Spontaneous
  Country: US (occurrence: US)
  Receive Date: 20200217
  Receipt Date: 20200217
  Transmission Date: 20200409
  Serious: No
  Sender: FDA-Public Use
  Company Number: None

PATIENT
  Age: 77 Year
  Sex: Female
  Weight: 66.6 kg

DRUGS (4)
  1. FOLIC ACID. [Concomitant]
     Active Substance: FOLIC ACID
  2. SULFASALAZINE 500 MG. SUBSTITUTED FOR AZULFIDINE [Suspect]
     Active Substance: SULFASALAZINE
     Indication: COLITIS ULCERATIVE
     Dosage: ?          QUANTITY:3 TABLET(S);?
     Route: 048
     Dates: start: 20200211, end: 20200213
  3. LOVASTATIN. [Concomitant]
     Active Substance: LOVASTATIN
  4. POTASSIUM [Concomitant]
     Active Substance: POTASSIUM

REACTIONS (3)
  - Nausea [None]
  - Gastrooesophageal reflux disease [None]
  - Vomiting [None]

NARRATIVE: CASE EVENT DATE: 20200211
